FAERS Safety Report 4433626-X (Version None)
Quarter: 2004Q3

REPORT INFORMATION
  Report Type: 
  Country: None (occurrence: None)
  Receive Date: 20040825
  Receipt Date: 20040825
  Transmission Date: 20050211
  Serious: Yes (Life-Threatening)
  Sender: FDA-Public Use
  Company Number: None

PATIENT
  Age: 40 Year
  Sex: Female
  Weight: 57 kg

DRUGS (7)
  1. OPTIRAY 300 [Suspect]
     Indication: COMPUTERISED TOMOGRAM ABDOMEN
     Dates: start: 20040614
  2. METROGEL-VAGINAL [Concomitant]
  3. HYDROCHLOROTHIAZINE [Concomitant]
  4. SLOW-K [Concomitant]
  5. DEMEROL [Concomitant]
  6. METOPROLOL [Concomitant]
  7. PERCOCET [Concomitant]

REACTIONS (4)
  - ANAPHYLACTIC REACTION [None]
  - BLOOD PRESSURE INCREASED [None]
  - BREATH SOUNDS ABSENT [None]
  - INJECTION SITE EXTRAVASATION [None]
